FAERS Safety Report 9120070 (Version 2)
Quarter: 2013Q1

REPORT INFORMATION
  Report Type: Spontaneous
  Country: US (occurrence: US)
  Receive Date: 20130226
  Receipt Date: 20130308
  Transmission Date: 20140127
  Serious: No
  Sender: FDA-Public Use
  Company Number: US-ASTRAZENECA-2013SE05290

PATIENT
  Age: 82 Year
  Sex: Male
  Weight: 83.5 kg

DRUGS (1)
  1. SYMBICORT PMDI [Suspect]
     Indication: CHRONIC OBSTRUCTIVE PULMONARY DISEASE
     Dosage: 160/4.5 MCG, 1 PUFF, BID
     Route: 055
     Dates: start: 2013

REACTIONS (4)
  - Dyspnoea [Unknown]
  - Dysgeusia [Unknown]
  - Off label use [Unknown]
  - Drug dose omission [Unknown]
